FAERS Safety Report 21453572 (Version 5)
Quarter: 2023Q4

REPORT INFORMATION
  Report Type: Report from Study
  Country: US (occurrence: US)
  Receive Date: 20221013
  Receipt Date: 20231024
  Transmission Date: 20240109
  Serious: Yes (Hospitalization)
  Sender: FDA-Public Use
  Company Number: US-PFIZER INC-PV202200076048

PATIENT
  Age: 6 Year
  Sex: Male
  Weight: 17.9 kg

DRUGS (7)
  1. PALBOCICLIB [Suspect]
     Active Substance: PALBOCICLIB
     Indication: Ewing^s sarcoma metastatic
     Dosage: 52.5 MG, 1X/DAY (QD)
     Route: 048
     Dates: start: 20220822, end: 20220925
  2. IRINOTECAN HYDROCHLORIDE [Suspect]
     Active Substance: IRINOTECAN HYDROCHLORIDE
     Indication: Ewing^s sarcoma metastatic
     Dosage: 37 MG, 1X/DAY (QD)
     Route: 041
     Dates: start: 20220822, end: 20220916
  3. TEMOZOLOMIDE [Suspect]
     Active Substance: TEMOZOLOMIDE
     Indication: Ewing^s sarcoma metastatic
     Dosage: 70 MG, 1X/DAY (QD)
     Route: 048
     Dates: start: 20220822, end: 20220916
  4. OXYCODONE [Concomitant]
     Active Substance: OXYCODONE
     Indication: Pain
     Dosage: 2.5 MG, Q4H PRN
     Route: 048
     Dates: start: 20220816
  5. CETIRIZINE [Concomitant]
     Active Substance: CETIRIZINE HYDROCHLORIDE
     Indication: Multiple allergies
     Dosage: 5 MG, 1X/DAY (QD)
     Route: 048
     Dates: start: 20220804
  6. ONDANSETRON [Concomitant]
     Active Substance: ONDANSETRON
     Indication: Nausea
     Dosage: 2.4 MG, TID PRN
     Route: 048
     Dates: start: 20211001
  7. LORTAB [Concomitant]
     Active Substance: ACETAMINOPHEN\HYDROCODONE BITARTRATE
     Indication: Pain
     Dosage: 7.5-325 MG, Q4H PRN
     Route: 048
     Dates: start: 20220712

REACTIONS (1)
  - Upper respiratory tract infection [Recovered/Resolved]

NARRATIVE: CASE EVENT DATE: 20221001
